FAERS Safety Report 23197818 (Version 1)
Quarter: 2023Q4

REPORT INFORMATION
  Report Type: Spontaneous
  Country: GB (occurrence: GB)
  Receive Date: 20231117
  Receipt Date: 20231117
  Transmission Date: 20240110
  Serious: Yes (Hospitalization, Other)
  Sender: FDA-Public Use
  Company Number: GB-RECORDATI RARE DISEASE INC.-2023008045

PATIENT

DRUGS (13)
  1. DACTINOMYCIN [Suspect]
     Active Substance: DACTINOMYCIN
     Dosage: PART OF 1ST CHEMOTHERAPY (ADRIAMYCIN (DOXORUBICIN), VINCRISTINE, ACTINOMYCIN AND CYCLOPHOSPHAMIDE)
     Route: 065
  2. DACTINOMYCIN [Suspect]
     Active Substance: DACTINOMYCIN
     Dosage: AS A PART OF CHANGING TREATMENT TO POMB/ACE CHEMOTHERAPY
  3. CISPLATIN [Suspect]
     Active Substance: CISPLATIN
     Indication: Germ cell neoplasm
     Dosage: ETOPOSIDE AND CISPLATIN CHEMOTHERAPY WITH CURATIVE INTENT
     Route: 065
  4. CISPLATIN [Suspect]
     Active Substance: CISPLATIN
     Dosage: AS A PART OF CHANGING TREATMENT TO POMB/ACE CHEMOTHERAPY
  5. VINCRISTINE [Suspect]
     Active Substance: VINCRISTINE
     Indication: Germ cell neoplasm
     Dosage: PART OF 1ST CHEMOTHERAPY (ADRIAMYCIN (DOXORUBICIN), VINCRISTINE, ACTINOMYCIN AND CYCLOPHOSPHAMIDE)
     Route: 065
  6. VINCRISTINE [Suspect]
     Active Substance: VINCRISTINE
     Dosage: AS A PART OF CHANGING TREATMENT TO POMB/ACE CHEMOTHERAPY
  7. METHOTREXATE [Suspect]
     Active Substance: METHOTREXATE
     Indication: Germ cell neoplasm
     Dosage: AS A PART OF CHANGING TREATMENT TO POMB/ACE CHEMOTHERAPY
     Route: 065
  8. BLEOMYCIN [Suspect]
     Active Substance: BLEOMYCIN SULFATE
     Indication: Germ cell neoplasm
     Dosage: AS A PART OF CHANGING TREATMENT TO POMB/ACE CHEMOTHERAPY
     Route: 065
  9. CYCLOPHOSPHAMIDE [Suspect]
     Active Substance: CYCLOPHOSPHAMIDE
     Indication: Germ cell neoplasm
     Dosage: PART OF 1ST CHEMOTHERAPY (ADRIAMYCIN (DOXORUBICIN), VINCRISTINE, ACTINOMYCIN AND CYCLOPHOSPHAMIDE)
     Route: 065
  10. CYCLOPHOSPHAMIDE [Suspect]
     Active Substance: CYCLOPHOSPHAMIDE
     Dosage: AS A PART OF CHANGING TREATMENT TO POMB/ACE CHEMOTHERAPY
  11. ETOPOSIDE [Suspect]
     Active Substance: ETOPOSIDE
     Indication: Germ cell neoplasm
     Dosage: AS A PART OF ETOPOSIDE AND CISPLATIN CHEMOTHERAPY WITH CURATIVE INTENT
     Route: 065
  12. ETOPOSIDE [Suspect]
     Active Substance: ETOPOSIDE
     Dosage: AS A PART OF CHANGING TREATMENT TO POMB/ACE CHEMOTHERAPY
  13. ADRIAMYCIN [Suspect]
     Active Substance: DOXORUBICIN HYDROCHLORIDE
     Indication: Germ cell neoplasm

REACTIONS (8)
  - Electrolyte imbalance [Unknown]
  - Urosepsis [Unknown]
  - COVID-19 [Unknown]
  - Subdural haemorrhage [Unknown]
  - Acute kidney injury [Unknown]
  - Pancytopenia [Unknown]
  - Myelosuppression [Unknown]
  - Off label use [Recovered/Resolved]
